FAERS Safety Report 6335768-0 (Version None)
Quarter: 2009Q3

REPORT INFORMATION
  Report Type: 
  Country: None (occurrence: None)
  Receive Date: 20090831
  Receipt Date: 20090824
  Transmission Date: 20100115
  Serious: Yes (Death, Hospitalization, Other)
  Sender: FDA-Public Use
  Company Number: US-MERCK-0805USA01252

PATIENT
  Age: 77 Year
  Sex: Male

DRUGS (5)
  1. FOSAMAX [Suspect]
     Indication: HIP FRACTURE
     Route: 048
     Dates: start: 20010501, end: 20060901
  2. FOSAMAX [Suspect]
     Route: 048
     Dates: start: 19990101
  3. FOSAMAX [Suspect]
     Indication: OSTEOPOROSIS
     Route: 048
     Dates: start: 20010501, end: 20060901
  4. FOSAMAX [Suspect]
     Route: 048
     Dates: start: 19990101
  5. [THERAPY UNSPECIFIED] [Concomitant]
     Indication: DIABETES MELLITUS
     Route: 065
     Dates: start: 19860101

REACTIONS (66)
  - ADVERSE DRUG REACTION [None]
  - AMNESIA [None]
  - ANAEMIA POSTOPERATIVE [None]
  - ANKLE FRACTURE [None]
  - ANXIETY [None]
  - ARTHRALGIA [None]
  - ARTHROPATHY [None]
  - BURNING SENSATION [None]
  - CARDIAC FAILURE CONGESTIVE [None]
  - CELLULITIS [None]
  - CERUMEN IMPACTION [None]
  - COUGH [None]
  - DEAFNESS NEUROSENSORY [None]
  - DEATH [None]
  - DEEP VEIN THROMBOSIS [None]
  - DELIRIUM [None]
  - DEMENTIA [None]
  - DENTAL CARIES [None]
  - DEPRESSION [None]
  - DIABETES MELLITUS INADEQUATE CONTROL [None]
  - DIABETIC FOOT [None]
  - DIABETIC NEUROPATHY [None]
  - DIABETIC ULCER [None]
  - DRY SKIN [None]
  - FAILURE TO THRIVE [None]
  - FALL [None]
  - FEMUR FRACTURE [None]
  - FISTULA [None]
  - GENERAL PHYSICAL HEALTH DETERIORATION [None]
  - GOITRE [None]
  - HEPARIN-INDUCED THROMBOCYTOPENIA [None]
  - HYPERLIPIDAEMIA [None]
  - HYPOAESTHESIA [None]
  - HYPOGLYCAEMIA [None]
  - IMPAIRED HEALING [None]
  - INGROWING NAIL [None]
  - JAW FRACTURE [None]
  - LIMB DISCOMFORT [None]
  - LOSS OF CONSCIOUSNESS [None]
  - LOWER LIMB FRACTURE [None]
  - MACULAR DEGENERATION [None]
  - MAJOR DEPRESSION [None]
  - MENTAL STATUS CHANGES [None]
  - MYALGIA [None]
  - ONYCHOMYCOSIS [None]
  - OSTEOMYELITIS [None]
  - OSTEONECROSIS [None]
  - OSTEORADIONECROSIS [None]
  - PARANASAL SINUS HYPERSECRETION [None]
  - PLATELET COUNT DECREASED [None]
  - PNEUMONIA [None]
  - POST PROCEDURAL HAEMORRHAGE [None]
  - PULMONARY EMBOLISM [None]
  - PUPILS UNEQUAL [None]
  - RENAL FAILURE CHRONIC [None]
  - SKIN ULCER [None]
  - SOMNOLENCE [None]
  - SYNCOPE [None]
  - TENDONITIS [None]
  - THROMBOCYTOPENIA [None]
  - TOE AMPUTATION [None]
  - TYPE 1 DIABETES MELLITUS [None]
  - TYPE 2 DIABETES MELLITUS [None]
  - URINARY INCONTINENCE [None]
  - URINARY RETENTION [None]
  - WRIST FRACTURE [None]
